FAERS Safety Report 24079835 (Version 1)
Quarter: 2024Q3

REPORT INFORMATION
  Report Type: Spontaneous
  Country: IL (occurrence: IL)
  Receive Date: 20240711
  Receipt Date: 20240711
  Transmission Date: 20241017
  Serious: Yes (Hospitalization, Other)
  Sender: PFIZER
  Company Number: IL-PFIZER INC-202400209527

PATIENT
  Age: 65 Year
  Sex: Male

DRUGS (1)
  1. AXITINIB [Suspect]
     Active Substance: AXITINIB
     Indication: Metastatic renal cell carcinoma
     Dosage: UNK

REACTIONS (7)
  - Tumour associated fever [Unknown]
  - Anaemia [Unknown]
  - Neoplasm progression [Unknown]
  - Decreased appetite [Unknown]
  - Vomiting [Unknown]
  - Depressed mood [Unknown]
  - Pain [Unknown]

NARRATIVE: CASE EVENT DATE: 20151101
